FAERS Safety Report 20305851 (Version 6)
Quarter: 2022Q4

REPORT INFORMATION
  Report Type: Spontaneous
  Country: US (occurrence: US)
  Receive Date: 20220106
  Receipt Date: 20221212
  Transmission Date: 20230112
  Serious: No
  Sender: FDA-Public Use
  Company Number: US-PFIZER INC-202101366868

PATIENT
  Age: 72 Year
  Sex: Female

DRUGS (5)
  1. XELJANZ XR [Suspect]
     Active Substance: TOFACITINIB CITRATE
     Indication: Rheumatoid arthritis
     Dosage: 11 MG, DAILY
     Route: 048
     Dates: start: 20210828
  2. XELJANZ XR [Suspect]
     Active Substance: TOFACITINIB CITRATE
     Dosage: 11 MG, 1X/DAY
     Route: 048
     Dates: start: 20220828
  3. PROLIA [Concomitant]
     Active Substance: DENOSUMAB
     Dosage: UNK
  4. TYLENOL [Concomitant]
     Active Substance: ACETAMINOPHEN
     Dosage: UNK
  5. COVID-19 VACCINE [Concomitant]
     Indication: COVID-19 immunisation
     Dosage: UNK
     Dates: start: 2022, end: 2022

REACTIONS (16)
  - Product dose omission in error [Unknown]
  - Drug ineffective [Unknown]
  - Drug effect less than expected [Unknown]
  - Hot flush [Unknown]
  - Pruritus [Unknown]
  - Rash [Unknown]
  - Insomnia [Unknown]
  - Condition aggravated [Unknown]
  - Discouragement [Unknown]
  - Depression [Unknown]
  - Dysuria [Recovered/Resolved]
  - Fatigue [Unknown]
  - Memory impairment [Unknown]
  - Pain in extremity [Unknown]
  - Arthralgia [Unknown]
  - Product dose omission issue [Unknown]

NARRATIVE: CASE EVENT DATE: 20220101
